FAERS Safety Report 7927850-9 (Version None)
Quarter: 2011Q4

REPORT INFORMATION
  Report Type: 
  Country: None (occurrence: None)
  Receive Date: 20111118
  Receipt Date: 20111118
  Transmission Date: 20120403
  Serious: Yes (Life-Threatening)
  Sender: FDA-Public Use
  Company Number: None

PATIENT
  Sex: Male
  Weight: 95.254 kg

DRUGS (2)
  1. TESTIM [Suspect]
     Indication: MUSCLE ATROPHY
     Dates: start: 20070101, end: 20081201
  2. TESTIM [Suspect]
     Indication: BLOOD TESTOSTERONE DECREASED
     Dates: start: 20070101, end: 20081201

REACTIONS (3)
  - BLOOD DISORDER [None]
  - PRODUCT ODOUR ABNORMAL [None]
  - NAUSEA [None]
